FAERS Safety Report 10246185 (Version 2)
Quarter: 2014Q3

REPORT INFORMATION
  Report Type: Spontaneous
  Country: PT (occurrence: PT)
  Receive Date: 20140619
  Receipt Date: 20140714
  Transmission Date: 20150326
  Serious: Yes (Other)
  Sender: FDA-Public Use
  Company Number: PT-JNJFOC-20140604829

PATIENT
  Age: 28 Year
  Sex: Male
  Weight: 80 kg

DRUGS (3)
  1. CHLORPHENAMINE [Concomitant]
     Active Substance: CHLORPHENIRAMINE MALEATE
     Route: 048
     Dates: start: 20121220
  2. BEN-U-RON [Concomitant]
     Route: 048
     Dates: start: 20121220
  3. STELARA [Suspect]
     Active Substance: USTEKINUMAB
     Indication: PSORIASIS
     Route: 058
     Dates: start: 20121123

REACTIONS (10)
  - Psoriasis [Recovered/Resolved with Sequelae]
  - Dermatosis [Recovered/Resolved with Sequelae]
  - Eyelid oedema [Recovered/Resolved with Sequelae]
  - Papule [Recovered/Resolved with Sequelae]
  - Pustular psoriasis [Recovered/Resolved with Sequelae]
  - Erythema of eyelid [Recovered/Resolved with Sequelae]
  - Eyelid exfoliation [Recovered/Resolved with Sequelae]
  - Skin plaque [Recovered/Resolved with Sequelae]
  - Erythema [Recovered/Resolved with Sequelae]
  - Pruritus [Recovered/Resolved with Sequelae]

NARRATIVE: CASE EVENT DATE: 20121226
